FAERS Safety Report 12173420 (Version 1)
Quarter: 2016Q1

REPORT INFORMATION
  Report Type: Spontaneous
  Country: US (occurrence: US)
  Receive Date: 20160311
  Receipt Date: 20160311
  Transmission Date: 20160526
  Serious: No
  Sender: FDA-Public Use
  Company Number: US-009507513-1603USA001879

PATIENT
  Age: 50 Year
  Sex: Male

DRUGS (8)
  1. PAXIL [Concomitant]
     Active Substance: PAROXETINE HYDROCHLORIDE
     Indication: DEPRESSION
     Dosage: 20 MG, QD
  2. VICTRELIS [Suspect]
     Active Substance: BOCEPREVIR
     Indication: CHRONIC HEPATITIS C
     Dosage: 4 CAPSULES, 3 TIMES A DAY
     Route: 048
     Dates: start: 20120615
  3. COPEGUS [Suspect]
     Active Substance: RIBAVIRIN
     Dosage: 600 MG IN MORNING AND 800 MG IN EVENING (1400 MG DAILY)
     Route: 048
     Dates: start: 20120815
  4. TRAMADOL HYDROCHLORIDE. [Concomitant]
     Active Substance: TRAMADOL HYDROCHLORIDE
     Dosage: 50 MG, UNK
     Route: 048
  5. COPEGUS [Suspect]
     Active Substance: RIBAVIRIN
     Indication: CHRONIC HEPATITIS C
     Dosage: 1200 MG, DAILY
     Route: 048
     Dates: start: 20120511, end: 20120814
  6. IBUPROFEN. [Concomitant]
     Active Substance: IBUPROFEN
     Dosage: AS NEEDED (600 MG, 3 IN 1 DAY)
     Route: 048
  7. GABAPENTIN. [Concomitant]
     Active Substance: GABAPENTIN
     Dosage: 400 MG, UNK
     Route: 048
  8. PEGASYS [Suspect]
     Active Substance: PEGINTERFERON ALFA-2A
     Indication: CHRONIC HEPATITIS C
     Dosage: 180 MCG EVERY WEEK
     Route: 058
     Dates: start: 20120511

REACTIONS (13)
  - Blood creatinine decreased [Unknown]
  - Dizziness [Unknown]
  - Aspartate aminotransferase increased [Unknown]
  - Serum ferritin increased [Unknown]
  - Tri-iodothyronine increased [Unknown]
  - Tenderness [Unknown]
  - Blood pressure increased [Unknown]
  - Blood bilirubin increased [Unknown]
  - Malaise [Unknown]
  - Carbon dioxide decreased [Unknown]
  - Thyroxine increased [Unknown]
  - Vitamin D decreased [Unknown]
  - Alanine aminotransferase increased [Unknown]

NARRATIVE: CASE EVENT DATE: 20131003
